FAERS Safety Report 9221881 (Version 1)
Quarter: 2013Q2

REPORT INFORMATION
  Report Type: Spontaneous
  Country: NZ (occurrence: NZ)
  Receive Date: 20130410
  Receipt Date: 20130410
  Transmission Date: 20140414
  Serious: Yes (Other)
  Sender: FDA-Public Use
  Company Number: NZ-MYLANLABS-2013S1007016

PATIENT
  Age: 24 Year
  Sex: Female

DRUGS (2)
  1. SALBUTAMOL [Suspect]
     Indication: ASTHMA
     Route: 055
     Dates: start: 20130322
  2. VENTOLIN [Concomitant]
     Indication: ASTHMA
     Route: 055

REACTIONS (4)
  - Chest discomfort [Unknown]
  - Chest pain [Unknown]
  - Dizziness [Unknown]
  - Malaise [Unknown]
